FAERS Safety Report 23234734 (Version 1)
Quarter: 2023Q4

REPORT INFORMATION
  Report Type: Spontaneous
  Country: US (occurrence: None)
  Receive Date: 20231128
  Receipt Date: 20231128
  Transmission Date: 20240110
  Serious: No
  Sender: FDA-Public Use
  Company Number: None

PATIENT
  Age: 73 Year
  Sex: Male
  Weight: 73.3 kg

DRUGS (2)
  1. CARBOPLATIN [Suspect]
     Active Substance: CARBOPLATIN
     Dates: end: 20231107
  2. TAXOL [Suspect]
     Active Substance: PACLITAXEL
     Dates: end: 20231107

REACTIONS (5)
  - Productive cough [None]
  - Decreased appetite [None]
  - Nausea [None]
  - Fatigue [None]
  - Infection [None]

NARRATIVE: CASE EVENT DATE: 20231113
